FAERS Safety Report 11490774 (Version 2)
Quarter: 2015Q3

REPORT INFORMATION
  Report Type: Report from Study
  Country: GB (occurrence: GB)
  Receive Date: 20150910
  Receipt Date: 20150921
  Transmission Date: 20151125
  Serious: Yes (Hospitalization, Other)
  Sender: FDA-Public Use
  Company Number: GB-JNJFOC-20150904932

PATIENT
  Sex: Male

DRUGS (1)
  1. STELARA [Suspect]
     Active Substance: USTEKINUMAB
     Indication: PSORIASIS
     Dosage: ONE SYRINGE ON WEEK 0
     Route: 058
     Dates: start: 20120730

REACTIONS (4)
  - Fall [Unknown]
  - Disorientation [Unknown]
  - Posture abnormal [Unknown]
  - Haemorrhage [Unknown]
